FAERS Safety Report 12705919 (Version 3)
Quarter: 2016Q3

REPORT INFORMATION
  Report Type: Spontaneous
  Country: US (occurrence: US)
  Receive Date: 20160901
  Receipt Date: 20160919
  Transmission Date: 20161109
  Serious: Yes (Hospitalization)
  Sender: FDA-Public Use
  Company Number: US-UNITED THERAPEUTICS-UNT-2016-013623

PATIENT
  Age: 64 Year
  Sex: Female
  Weight: 113.38 kg

DRUGS (4)
  1. ORENITRAM [Suspect]
     Active Substance: TREPROSTINIL
     Indication: IDIOPATHIC PULMONARY FIBROSIS
     Dosage: 1.5 MG, BID
     Route: 048
     Dates: start: 20160904
  2. ORENITRAM [Suspect]
     Active Substance: TREPROSTINIL
     Dosage: UNK
  3. ESBRIET [Concomitant]
     Active Substance: PIRFENIDONE
     Indication: PRODUCT USED FOR UNKNOWN INDICATION
  4. ORENITRAM [Suspect]
     Active Substance: TREPROSTINIL
     Indication: PULMONARY ARTERIAL HYPERTENSION
     Dosage: 1.75 MG, BID
     Route: 048
     Dates: start: 20160711

REACTIONS (7)
  - Pneumonia [Recovered/Resolved]
  - Fluid overload [Recovered/Resolved]
  - Off label use [Unknown]
  - Idiopathic pulmonary fibrosis [Unknown]
  - Headache [Recovered/Resolved]
  - Flushing [Recovered/Resolved]
  - Nausea [Recovered/Resolved]

NARRATIVE: CASE EVENT DATE: 2016
